FAERS Safety Report 18877975 (Version 1)
Quarter: 2021Q1

REPORT INFORMATION
  Report Type: Spontaneous
  Country: US (occurrence: US)
  Receive Date: 20210210
  Receipt Date: 20210210
  Transmission Date: 20210420
  Serious: Yes (Hospitalization)
  Sender: FDA-Public Use
  Company Number: None

PATIENT
  Age: 72 Year
  Sex: Male

DRUGS (1)
  1. CIPROFLOXACIN (CIPROFLOXACIN HCL 500MG TAB) [Suspect]
     Active Substance: CIPROFLOXACIN HYDROCHLORIDE
     Indication: URINARY TRACT INFECTION
     Route: 048
     Dates: start: 20210129, end: 20210129

REACTIONS (3)
  - Drug hypersensitivity [None]
  - Hypotension [None]
  - Tachycardia [None]

NARRATIVE: CASE EVENT DATE: 20210129
